FAERS Safety Report 21192262 (Version 6)
Quarter: 2023Q2

REPORT INFORMATION
  Report Type: Report from Study
  Country: FR (occurrence: FR)
  Receive Date: 20220809
  Receipt Date: 20230607
  Transmission Date: 20230722
  Serious: Yes (Other)
  Sender: FDA-Public Use
  Company Number: FR-GILEAD-2022-0592912

PATIENT
  Age: 57 Year
  Sex: Female
  Weight: 93 kg

DRUGS (6)
  1. SACITUZUMAB GOVITECAN-HZIY [Suspect]
     Active Substance: SACITUZUMAB GOVITECAN-HZIY
     Indication: Triple negative breast cancer
     Dosage: 10 MG/KG C1D1 AND C1D8
     Route: 042
     Dates: start: 20220627, end: 20220704
  2. SACITUZUMAB GOVITECAN-HZIY [Suspect]
     Active Substance: SACITUZUMAB GOVITECAN-HZIY
     Dosage: 7.5 MG/KG C2D1 AND C2D8
     Route: 042
     Dates: start: 20220718, end: 20220725
  3. SACITUZUMAB GOVITECAN-HZIY [Suspect]
     Active Substance: SACITUZUMAB GOVITECAN-HZIY
     Dosage: 7.5 MG/KG C3D1 AND C3D8
     Route: 042
     Dates: start: 20220808, end: 20220816
  4. SACITUZUMAB GOVITECAN-HZIY [Suspect]
     Active Substance: SACITUZUMAB GOVITECAN-HZIY
     Dosage: 7.5 MG/KG C4D1 AND C4D8
     Route: 042
     Dates: start: 20220907, end: 20220914
  5. SACITUZUMAB GOVITECAN-HZIY [Suspect]
     Active Substance: SACITUZUMAB GOVITECAN-HZIY
     Dosage: 7.5 MG/KG C5D1 AND C5D8
     Route: 042
     Dates: start: 20220928, end: 20221005
  6. SACITUZUMAB GOVITECAN-HZIY [Suspect]
     Active Substance: SACITUZUMAB GOVITECAN-HZIY
     Dosage: CYCLE 6
     Route: 042
     Dates: end: 20221018

REACTIONS (10)
  - Chest pain [Recovered/Resolved]
  - Diarrhoea [Unknown]
  - Neutropenia [Recovered/Resolved]
  - Alopecia [Not Recovered/Not Resolved]
  - Chest pain [Recovered/Resolved]
  - Off label use [Recovered/Resolved]
  - Inappropriate schedule of product administration [Recovered/Resolved]
  - Inappropriate schedule of product administration [Recovered/Resolved]
  - Vomiting [Recovered/Resolved]
  - Off label use [Recovered/Resolved]

NARRATIVE: CASE EVENT DATE: 20220627
